FAERS Safety Report 9261295 (Version 1)
Quarter: 2013Q2

REPORT INFORMATION
  Report Type: Spontaneous
  Country: US (occurrence: US)
  Receive Date: 20130429
  Receipt Date: 20130429
  Transmission Date: 20140414
  Serious: No
  Sender: FDA-Public Use
  Company Number: US-AMGEN-USASP2012068172

PATIENT
  Age: 74 Year
  Sex: Male

DRUGS (17)
  1. SENSIPAR [Suspect]
     Indication: HYPERPARATHYROIDISM SECONDARY
     Dosage: 60 MG, QD
     Dates: start: 201210, end: 201210
  2. SENSIPAR [Suspect]
     Indication: BLOOD DISORDER
     Dosage: 30 MG, BID
     Dates: start: 201210, end: 201210
  3. SENSIPAR [Suspect]
     Dosage: 30 MG, QD
     Dates: start: 201209
  4. RENVELA [Suspect]
     Dosage: UNK
  5. IMDUR [Concomitant]
     Dosage: UNK
  6. BABY ASPIRIN [Concomitant]
     Dosage: 81 MG, UNK
  7. BABY ASPIRIN [Concomitant]
  8. ALLOPURINOL [Concomitant]
     Dosage: UNK
  9. SYNTHROID [Concomitant]
     Dosage: UNK
  10. PROTONIX [Concomitant]
     Dosage: UNK
  11. RESTORIL                           /00054301/ [Concomitant]
     Dosage: UNK
  12. NEURONTIN [Concomitant]
     Dosage: 200 MG, UNK
  13. CELEBREX [Concomitant]
     Dosage: UNK
  14. TOPROL [Concomitant]
     Dosage: 25 MG, UNK
  15. LIPITOR [Concomitant]
     Dosage: 40 MG, UNK
  16. AMLODIPINE [Concomitant]
     Dosage: 5 MG, UNK
  17. MINOCYCLINE [Concomitant]
     Dosage: 50 MG, QD

REACTIONS (3)
  - Diarrhoea [Unknown]
  - Drug interaction [Unknown]
  - Blood calcium increased [Not Recovered/Not Resolved]
